FAERS Safety Report 24319745 (Version 1)
Quarter: 2024Q3

REPORT INFORMATION
  Report Type: Report from Study
  Country: US (occurrence: US)
  Receive Date: 20240914
  Receipt Date: 20240914
  Transmission Date: 20241017
  Serious: Yes (Other)
  Sender: ABBVIE
  Company Number: US-ABBVIE-5915715

PATIENT
  Sex: Male
  Weight: 90 kg

DRUGS (4)
  1. HUMIRA [Suspect]
     Active Substance: ADALIMUMAB
     Indication: Crohn^s disease
     Dosage: FORM STRENGTH: 80 MG
     Route: 058
     Dates: start: 202203, end: 202211
  2. SIMVASTATIN [Concomitant]
     Active Substance: SIMVASTATIN
     Indication: Diabetes mellitus
  3. JANUVIA [Concomitant]
     Active Substance: SITAGLIPTIN PHOSPHATE
     Indication: Diabetes mellitus
  4. LISINOPRIL [Concomitant]
     Active Substance: LISINOPRIL
     Indication: Blood pressure measurement

REACTIONS (3)
  - Psoriatic arthropathy [Unknown]
  - Blood viscosity decreased [Unknown]
  - Crohn^s disease [Unknown]

NARRATIVE: CASE EVENT DATE: 20230101
